FAERS Safety Report 8133323-3 (Version None)
Quarter: 2012Q1

REPORT INFORMATION
  Report Type: 
  Country: None (occurrence: None)
  Receive Date: 20120213
  Receipt Date: 20120201
  Transmission Date: 20120608
  Serious: Yes (Other)
  Sender: FDA-Public Use
  Company Number: US-ASTRAZENECA-2005UW17808

PATIENT
  Age: 72 Year
  Sex: Female
  Weight: 62.1 kg

DRUGS (10)
  1. ATENOLOL/CHLORTHIADONE(MYLAN) [Concomitant]
     Dates: end: 20080501
  2. VITAMIN TAB [Concomitant]
  3. TENORMIN [Suspect]
     Indication: HYPERTENSION
     Route: 048
     Dates: start: 20051201, end: 20080501
  4. ASPIRIN [Concomitant]
  5. ZESTORETIC [Suspect]
     Indication: HYPERTENSION
     Dosage: 10/12.5 MG
     Route: 048
     Dates: start: 20020101, end: 20051201
  6. DIOVAN [Suspect]
     Route: 065
     Dates: start: 20090901, end: 20111001
  7. ZESTORETIC [Suspect]
     Route: 048
  8. AVASTIN [Suspect]
     Route: 065
  9. BACTRIM [Concomitant]
     Dates: start: 20050801
  10. SULFADIAZINE [Concomitant]

REACTIONS (43)
  - OVERDOSE [None]
  - BLADDER CANCER [None]
  - NASAL CONGESTION [None]
  - URETHRAL CANCER [None]
  - CARDITIS [None]
  - HEART RATE IRREGULAR [None]
  - PURPURA [None]
  - URETERIC CANCER [None]
  - PAIN [None]
  - SPEECH DISORDER [None]
  - CARDIAC DISORDER [None]
  - RESPIRATORY DISORDER [None]
  - EYE DISORDER [None]
  - CARDIOMEGALY [None]
  - ANAPHYLACTIC REACTION [None]
  - EAR HAEMORRHAGE [None]
  - DECREASED APPETITE [None]
  - CEREBRAL ATROPHY [None]
  - ISCHAEMIA [None]
  - RENAL FAILURE [None]
  - CEREBROVASCULAR ACCIDENT [None]
  - ULCER [None]
  - WOUND INFECTION [None]
  - BLINDNESS UNILATERAL [None]
  - ARRHYTHMIA [None]
  - MYOCARDIAL INFARCTION [None]
  - HEADACHE [None]
  - DYSGRAPHIA [None]
  - EYE HAEMORRHAGE [None]
  - DEAFNESS [None]
  - BALANCE DISORDER [None]
  - KIDNEY INFECTION [None]
  - ACCIDENT [None]
  - RENAL DISORDER [None]
  - DIARRHOEA [None]
  - TYMPANIC MEMBRANE PERFORATION [None]
  - CORONARY ARTERY OCCLUSION [None]
  - HYPERTENSION [None]
  - BLADDER DISORDER [None]
  - RENAL COLIC [None]
  - TRANSIENT ISCHAEMIC ATTACK [None]
  - TINNITUS [None]
  - EYE PAIN [None]
